FAERS Safety Report 4560224-X (Version None)
Quarter: 2005Q1

REPORT INFORMATION
  Report Type: 
  Country: None (occurrence: None)
  Receive Date: 20050125
  Receipt Date: 20050118
  Transmission Date: 20050727
  Serious: Yes (Other)
  Sender: FDA-Public Use
  Company Number: 200510388US

PATIENT
  Sex: Female
  Weight: 113 kg

DRUGS (6)
  1. ARAVA [Suspect]
     Indication: OSTEOARTHRITIS
     Dates: start: 20020601, end: 20050115
  2. DIOVAN [Concomitant]
     Indication: HYPERTENSION
     Dosage: DOSE: UNK
  3. DARVOCET-N 100 [Concomitant]
     Indication: PAIN MANAGEMENT
     Dosage: DOSE: UNK
  4. LORTAB [Concomitant]
     Indication: PAIN MANAGEMENT
     Dosage: DOSE: UNK
  5. VALIUM [Concomitant]
     Dosage: DOSE: UNK
  6. WELLBUTRIN [Concomitant]
     Dosage: DOSE: UNK

REACTIONS (7)
  - ALANINE AMINOTRANSFERASE INCREASED [None]
  - ASPARTATE AMINOTRANSFERASE INCREASED [None]
  - BLOOD CHOLESTEROL INCREASED [None]
  - DENTAL CARIES [None]
  - HEPATIC ENZYME INCREASED [None]
  - OSTEONECROSIS [None]
  - PAIN IN EXTREMITY [None]
